FAERS Safety Report 4818786-0 (Version None)
Quarter: 2005Q4

REPORT INFORMATION
  Report Type: 
  Country: None (occurrence: None)
  Receive Date: 20051101
  Receipt Date: 20051018
  Transmission Date: 20060501
  Serious: Yes (Hospitalization, Other)
  Sender: FDA-Public Use
  Company Number: 200510186BCA

PATIENT
  Age: 91 Year
  Sex: Female
  Weight: 140 kg

DRUGS (5)
  1. ALKA SELTZER [Suspect]
     Indication: DYSPEPSIA
     Dosage: 325 MG, PRN, ORAL
     Route: 048
  2. ALKA SELTZER [Suspect]
     Indication: FLATULENCE
     Dosage: 325 MG, PRN, ORAL
     Route: 048
  3. PEPTO-BISMOL (BISMUTH SUBSALICYLATE) [Suspect]
     Indication: DYSPEPSIA
  4. PEPTO-BISMOL (BISMUTH SUBSALICYLATE) [Suspect]
     Indication: FLATULENCE
  5. TUMS [Concomitant]

REACTIONS (3)
  - GASTROINTESTINAL HAEMORRHAGE [None]
  - HAEMATEMESIS [None]
  - LOSS OF CONSCIOUSNESS [None]
